FAERS Safety Report 20195928 (Version 2)
Quarter: 2022Q1

REPORT INFORMATION
  Report Type: Spontaneous
  Country: JP (occurrence: JP)
  Receive Date: 20211216
  Receipt Date: 20220128
  Transmission Date: 20220423
  Serious: Yes (Other)
  Sender: FDA-Public Use
  Company Number: JP-GSKNCCC-Case-01371711_AE-52684

PATIENT
  Sex: Female

DRUGS (10)
  1. BOTOX [Suspect]
     Active Substance: ONABOTULINUMTOXINA
     Indication: Muscle spasticity
     Dosage: UNK, SINGLE
     Route: 030
     Dates: start: 202111, end: 202111
  2. BOTOX [Suspect]
     Active Substance: ONABOTULINUMTOXINA
     Indication: Cerebral palsy
     Dosage: UNK, SINGLE
     Route: 030
     Dates: start: 20210719, end: 20210719
  3. BOTOX [Suspect]
     Active Substance: ONABOTULINUMTOXINA
     Dosage: UNK, SINGLE
     Route: 030
     Dates: start: 20210416, end: 20210416
  4. BOTOX [Suspect]
     Active Substance: ONABOTULINUMTOXINA
     Dosage: UNK, SINGLE
     Route: 030
     Dates: start: 20210129, end: 20210129
  5. BACLOFEN [Concomitant]
     Active Substance: BACLOFEN
     Indication: Muscle spasms
     Dosage: 15 MG, QD
     Route: 048
     Dates: start: 202012
  6. DANTRIUM [Concomitant]
     Active Substance: DANTROLENE SODIUM
     Indication: Muscle spasms
     Dosage: 33 MG, QD
     Route: 048
     Dates: start: 202012
  7. ETIZOLAM [Concomitant]
     Active Substance: ETIZOLAM
     Indication: Muscle spasms
     Dosage: 0.6 MG, QD
     Route: 048
     Dates: start: 202012
  8. PHENOBARBITAL [Concomitant]
     Active Substance: PHENOBARBITAL
     Route: 048
  9. RIVOTRIL [Concomitant]
     Active Substance: CLONAZEPAM
     Route: 048
  10. POTASSIUM BROMIDE YAMAZEN [Concomitant]
     Route: 048

REACTIONS (12)
  - Epilepsy [Recovering/Resolving]
  - Loss of consciousness [Recovering/Resolving]
  - Mood altered [Recovering/Resolving]
  - Rash [Recovering/Resolving]
  - Pyrexia [Recovering/Resolving]
  - Erythema [Not Recovered/Not Resolved]
  - Product use issue [Unknown]
  - Off label use [Unknown]
  - Eye movement disorder [Recovering/Resolving]
  - Inappropriate schedule of product administration [Unknown]
  - Urticaria [Unknown]
  - Injection site erythema [Unknown]

NARRATIVE: CASE EVENT DATE: 20210129
